FAERS Safety Report 8917378 (Version 1)
Quarter: 2012Q4

REPORT INFORMATION
  Report Type: 
  Country: SE (occurrence: SE)
  Receive Date: 20121120
  Receipt Date: 20121120
  Transmission Date: 20130627
  Serious: Yes (Hospitalization, Other)
  Sender: FDA-Public Use
  Company Number: SE-PFIZER INC-2012287727

PATIENT
  Age: 45 Year
  Sex: Female
  Weight: 45 kg

DRUGS (10)
  1. GENOTROPIN [Suspect]
     Dosage: 0.4 mg, 1x/day, 7 injections/week
     Route: 058
     Dates: start: 19991027
  2. TRIONETTA [Concomitant]
     Indication: CONTRACEPTION
     Dosage: UNK
     Dates: start: 19991001
  3. TRISEKVENS [Concomitant]
     Indication: LUTEINIZING HORMONE DEFICIENCY
     Dosage: UNK
     Dates: start: 20001001
  4. TRISEKVENS [Concomitant]
     Indication: FOLLICLE-STIMULATING HORMONE DEFICIENCY
  5. TRISEKVENS [Concomitant]
     Indication: OVARIAN DISORDER
  6. TRISEKVENS [Concomitant]
     Indication: HYPOGONADISM
  7. PERGOTIME [Concomitant]
     Indication: LUTEINIZING HORMONE DEFICIENCY
     Dosage: UNK
     Dates: start: 20020202
  8. PERGOTIME [Concomitant]
     Indication: FOLLICLE-STIMULATING HORMONE DEFICIENCY
  9. PERGOTIME [Concomitant]
     Indication: OVARIAN DISORDER
  10. PERGOTIME [Concomitant]
     Indication: HYPOGONADISM

REACTIONS (1)
  - Ascites [Unknown]
